FAERS Safety Report 22634090 (Version 1)
Quarter: 2023Q2

REPORT INFORMATION
  Report Type: Spontaneous
  Country: US (occurrence: None)
  Receive Date: 20230622
  Receipt Date: 20230622
  Transmission Date: 20230722
  Serious: Yes (Other)
  Sender: FDA-Public Use
  Company Number: None

PATIENT
  Age: 20 Year
  Sex: Male
  Weight: 70.02 kg

DRUGS (4)
  1. INVEGA SUSTENNA [Suspect]
     Active Substance: PALIPERIDONE PALMITATE
     Indication: Bipolar I disorder
     Dosage: OTHER FREQUENCY : MONTHLY;?
     Route: 030
     Dates: start: 20210210, end: 20230531
  2. DEPAKOTE [Suspect]
     Active Substance: DIVALPROEX SODIUM
     Indication: Bipolar I disorder
     Dosage: OTHER FREQUENCY : QHS;?
     Route: 048
     Dates: start: 20221028, end: 20230602
  3. RISPERIDONE [Concomitant]
     Active Substance: RISPERIDONE
     Dates: start: 20221028, end: 20230119
  4. RISPERIDONE [Concomitant]
     Active Substance: RISPERIDONE
     Dates: start: 20230119, end: 20230501

REACTIONS (2)
  - Drug level decreased [None]
  - Benign ethnic neutropenia [None]

NARRATIVE: CASE EVENT DATE: 20230531
